FAERS Safety Report 12189799 (Version 2)
Quarter: 2016Q1

REPORT INFORMATION
  Report Type: Report from Study
  Country: US (occurrence: US)
  Receive Date: 20160318
  Receipt Date: 20160330
  Transmission Date: 20160526
  Serious: No
  Sender: FDA-Public Use
  Company Number: US-AMGEN-USASL2016031628

PATIENT
  Age: 43 Year
  Sex: Female

DRUGS (1)
  1. ENBREL [Suspect]
     Active Substance: ETANERCEPT
     Indication: RHEUMATOID ARTHRITIS
     Dosage: 50 MG, QWK
     Route: 065
     Dates: start: 20160212

REACTIONS (9)
  - Hypoaesthesia [Unknown]
  - Injection site erythema [Unknown]
  - Injection site pruritus [Unknown]
  - Condition aggravated [Not Recovered/Not Resolved]
  - Injection site reaction [Unknown]
  - Injection site swelling [Unknown]
  - Malaise [Unknown]
  - Injection site warmth [Unknown]
  - Injection site rash [Unknown]

NARRATIVE: CASE EVENT DATE: 20160212
